FAERS Safety Report 20731980 (Version 2)
Quarter: 2022Q3

REPORT INFORMATION
  Report Type: Spontaneous
  Country: CH (occurrence: CH)
  Receive Date: 20220420
  Receipt Date: 20220714
  Transmission Date: 20221026
  Serious: Yes (Other)
  Sender: FDA-Public Use
  Company Number: CH-009507513-2204CHE006612

PATIENT
  Age: 73 Year

DRUGS (2)
  1. TEMODAL [Suspect]
     Active Substance: TEMOZOLOMIDE
     Indication: Soft tissue sarcoma
     Dosage: UNK
     Route: 048
  2. DOXORUBICIN [Suspect]
     Active Substance: DOXORUBICIN
     Indication: Soft tissue sarcoma
     Dosage: UNK

REACTIONS (2)
  - Malignant neoplasm progression [Unknown]
  - Off label use [Unknown]
